FAERS Safety Report 5517913-X (Version None)
Quarter: 2007Q4

REPORT INFORMATION
  Report Type: 
  Country: None (occurrence: None)
  Receive Date: 20071113
  Receipt Date: 20071101
  Transmission Date: 20080405
  Serious: Yes (Hospitalization, Other)
  Sender: FDA-Public Use
  Company Number: 000592

PATIENT
  Age: 50 Year
  Sex: Male

DRUGS (3)
  1. ZEVALIN [Suspect]
     Indication: NON-HODGKIN'S LYMPHOMA
     Dosage: 1X;IV
     Route: 042
     Dates: start: 20030107, end: 20030107
  2. ZEVALIN [Suspect]
     Indication: NON-HODGKIN'S LYMPHOMA
     Dosage: 1X;IV
     Route: 042
     Dates: start: 20030115, end: 20030115
  3. RITUXIMAB [Concomitant]

REACTIONS (4)
  - INTERVERTEBRAL DISC DISORDER [None]
  - LYMPHOMA [None]
  - MUCOSAL INFLAMMATION [None]
  - ORAL MUCOSAL BLISTERING [None]
